FAERS Safety Report 22069431 (Version 1)
Quarter: 2023Q1

REPORT INFORMATION
  Report Type: Spontaneous
  Country: FR (occurrence: None)
  Receive Date: 20230307
  Receipt Date: 20230307
  Transmission Date: 20230418
  Serious: Yes (Hospitalization)
  Sender: FDA-Public Use
  Company Number: 2023A047773

PATIENT
  Age: 62 Year
  Sex: Female
  Weight: 75 kg

DRUGS (4)
  1. FULVESTRANT [Suspect]
     Active Substance: FULVESTRANT
     Indication: Breast cancer
     Dosage: 250 MGX2/MONTH
     Route: 030
     Dates: start: 20220405
  2. ABEMACICLIB [Suspect]
     Active Substance: ABEMACICLIB
     Indication: Breast cancer
     Dosage: 150 MGX2/D
     Route: 048
     Dates: start: 20220405
  3. SIMVASTATIN [Concomitant]
     Active Substance: SIMVASTATIN
  4. XARELTO [Concomitant]
     Active Substance: RIVAROXABAN

REACTIONS (1)
  - Jugular vein thrombosis [Recovered/Resolved]

NARRATIVE: CASE EVENT DATE: 20220727
